FAERS Safety Report 21189957 (Version 1)
Quarter: 2022Q3

REPORT INFORMATION
  Report Type: Report from Study
  Country: KR (occurrence: KR)
  Receive Date: 20220809
  Receipt Date: 20220809
  Transmission Date: 20221027
  Serious: Yes (Hospitalization, Other)
  Sender: FDA-Public Use
  Company Number: KR-ViiV Healthcare Limited-KR2022GSK115568

PATIENT

DRUGS (6)
  1. DOLUTEGRAVIR SODIUM\LAMIVUDINE [Suspect]
     Active Substance: DOLUTEGRAVIR SODIUM\LAMIVUDINE
     Indication: HIV infection
     Dosage: 1 DF, QD
     Route: 048
     Dates: start: 20210618
  2. TRASPEN [Concomitant]
     Indication: Arthralgia
     Dosage: 1 DF, TID
     Route: 048
     Dates: start: 20200225
  3. NEXIUM [Concomitant]
     Active Substance: ESOMEPRAZOLE MAGNESIUM
     Indication: Gastrooesophageal reflux disease
     Dosage: 1 DF, QD
     Route: 048
     Dates: start: 20191206
  4. TWOLION [Concomitant]
     Indication: Pruritus
     Dosage: 1 DF, BID
     Route: 048
     Dates: start: 20181023
  5. ASPIRIN [Concomitant]
     Active Substance: ASPIRIN
     Indication: Chest discomfort
     Dosage: 1 DF, QD
     Route: 048
     Dates: start: 20150209
  6. ALLEGRA [Concomitant]
     Active Substance: FEXOFENADINE HYDROCHLORIDE
     Indication: Pruritus
     Dosage: 1 DF, QD
     Route: 048
     Dates: start: 20150202

REACTIONS (1)
  - Pulmonary oedema [Recovered/Resolved]

NARRATIVE: CASE EVENT DATE: 20211120
